FAERS Safety Report 5913711-3 (Version None)
Quarter: 2008Q4

REPORT INFORMATION
  Report Type: 
  Country: None (occurrence: None)
  Receive Date: 20081009
  Receipt Date: 20080926
  Transmission Date: 20090506
  Serious: Yes (Other)
  Sender: FDA-Public Use
  Company Number: US-GENENTECH-268796

PATIENT

DRUGS (2)
  1. BEVACIZUMAB [Suspect]
     Indication: NEOPLASM
     Dosage: 5 MG/KG, Q2W
     Route: 042
  2. SORAFENIB [Suspect]
     Indication: NEOPLASM
     Dosage: 200 MG, BID
     Route: 048

REACTIONS (1)
  - TRANSAMINASES INCREASED [None]
